FAERS Safety Report 9115926 (Version 1)
Quarter: 2013Q1

REPORT INFORMATION
  Report Type: Spontaneous
  Country: US (occurrence: US)
  Receive Date: 20130225
  Receipt Date: 20130225
  Transmission Date: 20140127
  Serious: Yes (Other)
  Sender: FDA-Public Use
  Company Number: US-PFIZER INC-2013066177

PATIENT
  Age: 52 Year
  Sex: Female
  Weight: 73.47 kg

DRUGS (2)
  1. CHANTIX [Suspect]
     Indication: SMOKING CESSATION THERAPY
     Dosage: UNK
     Dates: start: 2007, end: 2007
  2. PRISTIQ [Concomitant]
     Indication: DEPRESSION
     Dosage: UNK

REACTIONS (1)
  - Neoplasm [Unknown]
